FAERS Safety Report 6976637-2 (Version None)
Quarter: 2010Q3

REPORT INFORMATION
  Report Type: 
  Country: None (occurrence: None)
  Receive Date: 20100910
  Receipt Date: 20100901
  Transmission Date: 20110219
  Serious: Yes (Other)
  Sender: FDA-Public Use
  Company Number: US-PFIZER INC-2010082200

PATIENT
  Sex: Female

DRUGS (1)
  1. CHANTIX [Suspect]
     Indication: SMOKING CESSATION THERAPY
     Dosage: 1 MG PER DAY
     Dates: start: 20070401, end: 20070708

REACTIONS (3)
  - ALCOHOL USE [None]
  - OVERDOSE [None]
  - SUICIDE ATTEMPT [None]
